FAERS Safety Report 21181395 (Version 1)
Quarter: 2022Q3

REPORT INFORMATION
  Report Type: Spontaneous
  Country: US (occurrence: US)
  Receive Date: 20220806
  Receipt Date: 20220806
  Transmission Date: 20221026
  Serious: No
  Sender: FDA-Public Use
  Company Number: US-SA-SAC20220801001179

PATIENT
  Sex: Female
  Weight: 63.5 kg

DRUGS (1)
  1. DUPIXENT [Suspect]
     Active Substance: DUPILUMAB
     Indication: Illness
     Route: 058

REACTIONS (8)
  - Rhinorrhoea [Unknown]
  - Oral pruritus [Unknown]
  - Anxiety [Unknown]
  - Sneezing [Unknown]
  - Cough [Unknown]
  - Throat irritation [Unknown]
  - Inappropriate schedule of product administration [Unknown]
  - Product use in unapproved indication [Unknown]
